FAERS Safety Report 7526412-5 (Version None)
Quarter: 2011Q2

REPORT INFORMATION
  Report Type: 
  Country: None (occurrence: None)
  Receive Date: 20110606
  Receipt Date: 20110601
  Transmission Date: 20111010
  Serious: Yes (Hospitalization)
  Sender: FDA-Public Use
  Company Number: CA-PFIZER INC-2010070238

PATIENT
  Age: 87 Year
  Sex: Male
  Weight: 61 kg

DRUGS (11)
  1. LIPITOR [Suspect]
     Indication: DYSLIPIDAEMIA
     Dosage: 20 MG, 1X/DAY
     Route: 048
     Dates: start: 20011201, end: 20050328
  2. SYNTHROID [Concomitant]
     Dosage: 125 UG, 1X/DAY
     Route: 048
  3. SYNTHROID [Concomitant]
     Dosage: 175 UG, UNK
     Dates: start: 20050517
  4. COLACE [Concomitant]
     Dosage: 2X 100 MG, 1X/DAY AT BEDTIME
     Route: 048
  5. PLAVIX [Concomitant]
     Dosage: 75 MG, 1X/DAY
     Route: 048
  6. ALTACE [Concomitant]
     Dosage: 2.5 MG, 1X/DAY
     Route: 048
  7. NITRO-DUR [Concomitant]
     Dosage: 0.2 MG, 12 HRS/24
     Route: 062
  8. PRILOSEC [Concomitant]
     Dosage: 20 MG, 1X/DAY
     Route: 048
  9. SYNTHROID [Concomitant]
     Dosage: 150 UG, UNK
     Dates: start: 20050329
  10. ALDACTONE [Concomitant]
     Dosage: 25 MG, 1X/DAY
     Route: 048
  11. LASIX [Concomitant]
     Dosage: 20 MG, 1X/DAY
     Route: 048

REACTIONS (7)
  - MUSCULAR WEAKNESS [None]
  - CHOKING [None]
  - POLYMYOSITIS [None]
  - ALANINE AMINOTRANSFERASE INCREASED [None]
  - ASPARTATE AMINOTRANSFERASE INCREASED [None]
  - BLOOD CREATINE PHOSPHOKINASE INCREASED [None]
  - BLOOD THYROID STIMULATING HORMONE DECREASED [None]
